FAERS Safety Report 18809506 (Version 1)
Quarter: 2021Q1

REPORT INFORMATION
  Report Type: Spontaneous
  Country: CN (occurrence: CN)
  Receive Date: 20210129
  Receipt Date: 20210129
  Transmission Date: 20210419
  Serious: Yes (Hospitalization)
  Sender: FDA-Public Use
  Company Number: CN-LUPIN PHARMACEUTICALS INC.-2021-00810

PATIENT
  Age: 11 Year
  Sex: Male

DRUGS (8)
  1. LINEZOLID. [Suspect]
     Active Substance: LINEZOLID
     Indication: ACINETOBACTER INFECTION
  2. PREDNISONE. [Suspect]
     Active Substance: PREDNISONE
     Indication: PITYRIASIS LICHENOIDES ET VARIOLIFORMIS ACUTA
     Dosage: HIGH?DOSE
     Route: 065
  3. LINEZOLID. [Suspect]
     Active Substance: LINEZOLID
     Indication: PITYRIASIS LICHENOIDES ET VARIOLIFORMIS ACUTA
     Dosage: 600 MILLIGRAM, QD
     Route: 065
  4. TIGECYCLINE. [Suspect]
     Active Substance: TIGECYCLINE
     Indication: PITYRIASIS LICHENOIDES ET VARIOLIFORMIS ACUTA
     Dosage: 50 MILLIGRAM, QD
     Route: 065
  5. POLYMYXIN B. [Suspect]
     Active Substance: POLYMYXIN B
     Indication: PITYRIASIS LICHENOIDES ET VARIOLIFORMIS ACUTA
     Dosage: 500000 UNIT, QD
     Route: 065
  6. POLYMYXIN B. [Suspect]
     Active Substance: POLYMYXIN B
     Indication: ACINETOBACTER INFECTION
  7. PREDNISONE. [Suspect]
     Active Substance: PREDNISONE
     Indication: ACINETOBACTER INFECTION
  8. TIGECYCLINE. [Suspect]
     Active Substance: TIGECYCLINE
     Indication: ACINETOBACTER INFECTION

REACTIONS (1)
  - Treatment failure [Unknown]
